FAERS Safety Report 21028207 (Version 1)
Quarter: 2022Q3

REPORT INFORMATION
  Report Type: Spontaneous
  Country: DE (occurrence: DE)
  Receive Date: 20220630
  Receipt Date: 20220630
  Transmission Date: 20221027
  Serious: Yes (Death, Other)
  Sender: FDA-Public Use
  Company Number: DE-NOVARTISPH-NVSC2022DE147196

PATIENT
  Sex: Male
  Weight: 1.28 kg

DRUGS (4)
  1. QUETIAPINE [Suspect]
     Active Substance: QUETIAPINE
     Indication: Foetal exposure during pregnancy
     Dosage: MATERNAL DOSE: 25 MG, Q8H, 75 [MG/D (25-25-25) ]
     Route: 064
     Dates: start: 20210323, end: 20210702
  2. VENLAFAXINE [Suspect]
     Active Substance: VENLAFAXINE HYDROCHLORIDE
     Indication: Foetal exposure during pregnancy
     Dosage: MATERNAL DOSE: 225 [MG/D (BIS 150 MG/D) ]/ REDUCTION TO 150 MG/D AT GW 23 1/7
     Route: 064
     Dates: start: 20210120, end: 20210731
  3. LITHIUM CARBONATE [Suspect]
     Active Substance: LITHIUM CARBONATE
     Indication: Foetal exposure during pregnancy
     Dosage: MATERNAL DOSE: 450 MG Q12H
     Route: 064
     Dates: start: 20210422, end: 20210731
  4. TAVOR [Concomitant]
     Indication: Foetal exposure during pregnancy
     Dosage: MATERNAL DOSE : UNKNOWN
     Route: 064
     Dates: start: 20210421, end: 20210421

REACTIONS (5)
  - Tachycardia foetal [Unknown]
  - Ascites [Unknown]
  - Hydrops foetalis [Unknown]
  - Pericardial effusion [Unknown]
  - Foetal exposure during pregnancy [Unknown]
